FAERS Safety Report 23961720 (Version 13)
Quarter: 2025Q3

REPORT INFORMATION
  Report Type: Report from Study
  Country: EU (occurrence: EU)
  Receive Date: 20240611
  Receipt Date: 20250929
  Transmission Date: 20251021
  Serious: Yes (Death, Life-Threatening, Hospitalization, Other)
  Sender: MYLAN
  Company Number: EU-ROCHE-3566149

PATIENT
  Age: 46 Year
  Sex: Male
  Weight: 74 kg

DRUGS (336)
  1. PREDNISONE [Suspect]
     Active Substance: PREDNISONE
     Indication: Richter^s syndrome
     Dosage: 100 MG/DAY, IV OR ORALLY ON D1-D5, R-CHOP ON 3 WEEK CYCLE (21 DAYS) (DAY 1)
     Dates: start: 20240430, end: 20240506
  2. PREDNISONE [Suspect]
     Active Substance: PREDNISONE
     Indication: Diffuse large B-cell lymphoma stage III
     Dosage: 100 MG/DAY, IV OR ORALLY ON D1-D5, R-CHOP ON 3 WEEK CYCLE (21 DAYS) (DAY 1)
     Dates: start: 20240430, end: 20240506
  3. PREDNISONE [Suspect]
     Active Substance: PREDNISONE
     Dosage: 100 MG/DAY, IV OR ORALLY ON D1-D5, R-CHOP ON 3 WEEK CYCLE (21 DAYS) (DAY 1)
     Route: 048
     Dates: start: 20240430, end: 20240506
  4. PREDNISONE [Suspect]
     Active Substance: PREDNISONE
     Dosage: 100 MG/DAY, IV OR ORALLY ON D1-D5, R-CHOP ON 3 WEEK CYCLE (21 DAYS) (DAY 1)
     Route: 048
     Dates: start: 20240430, end: 20240506
  5. PREDNISONE [Suspect]
     Active Substance: PREDNISONE
  6. PREDNISONE [Suspect]
     Active Substance: PREDNISONE
  7. PREDNISONE [Suspect]
     Active Substance: PREDNISONE
     Route: 065
  8. PREDNISONE [Suspect]
     Active Substance: PREDNISONE
     Route: 065
  9. ACETAMINOPHEN [Suspect]
     Active Substance: ACETAMINOPHEN
     Indication: Premedication
  10. ACETAMINOPHEN [Suspect]
     Active Substance: ACETAMINOPHEN
  11. ACETAMINOPHEN [Suspect]
     Active Substance: ACETAMINOPHEN
     Route: 065
  12. ACETAMINOPHEN [Suspect]
     Active Substance: ACETAMINOPHEN
     Route: 065
  13. ACETAMINOPHEN [Suspect]
     Active Substance: ACETAMINOPHEN
     Dates: start: 20240430, end: 20240517
  14. ACETAMINOPHEN [Suspect]
     Active Substance: ACETAMINOPHEN
     Route: 048
     Dates: start: 20240430, end: 20240517
  15. ACETAMINOPHEN [Suspect]
     Active Substance: ACETAMINOPHEN
     Route: 048
     Dates: start: 20240430, end: 20240517
  16. ACETAMINOPHEN [Suspect]
     Active Substance: ACETAMINOPHEN
     Dates: start: 20240430, end: 20240517
  17. ACETAMINOPHEN [Suspect]
     Active Substance: ACETAMINOPHEN
     Route: 048
     Dates: start: 20240502, end: 20240517
  18. ACETAMINOPHEN [Suspect]
     Active Substance: ACETAMINOPHEN
     Dates: start: 20240502, end: 20240517
  19. ACETAMINOPHEN [Suspect]
     Active Substance: ACETAMINOPHEN
     Route: 048
     Dates: start: 20240502, end: 20240517
  20. ACETAMINOPHEN [Suspect]
     Active Substance: ACETAMINOPHEN
     Dates: start: 20240502, end: 20240517
  21. ACETAMINOPHEN [Suspect]
     Active Substance: ACETAMINOPHEN
     Dates: start: 20240510, end: 20240510
  22. ACETAMINOPHEN [Suspect]
     Active Substance: ACETAMINOPHEN
     Route: 048
     Dates: start: 20240510, end: 20240510
  23. ACETAMINOPHEN [Suspect]
     Active Substance: ACETAMINOPHEN
     Route: 048
     Dates: start: 20240510, end: 20240510
  24. ACETAMINOPHEN [Suspect]
     Active Substance: ACETAMINOPHEN
     Dates: start: 20240510, end: 20240510
  25. ACETAMINOPHEN [Suspect]
     Active Substance: ACETAMINOPHEN
     Route: 048
     Dates: start: 20240517, end: 20240517
  26. ACETAMINOPHEN [Suspect]
     Active Substance: ACETAMINOPHEN
     Route: 048
     Dates: start: 20240517, end: 20240517
  27. ACETAMINOPHEN [Suspect]
     Active Substance: ACETAMINOPHEN
     Dates: start: 20240517, end: 20240517
  28. ACETAMINOPHEN [Suspect]
     Active Substance: ACETAMINOPHEN
     Dates: start: 20240517, end: 20240517
  29. ONDANSETRON [Suspect]
     Active Substance: ONDANSETRON
     Indication: Product used for unknown indication
     Dates: start: 20240519, end: 20240519
  30. ONDANSETRON [Suspect]
     Active Substance: ONDANSETRON
     Route: 065
     Dates: start: 20240519, end: 20240519
  31. ONDANSETRON [Suspect]
     Active Substance: ONDANSETRON
     Route: 065
     Dates: start: 20240519, end: 20240519
  32. ONDANSETRON [Suspect]
     Active Substance: ONDANSETRON
     Dates: start: 20240519, end: 20240519
  33. DOXORUBICIN [Suspect]
     Active Substance: DOXORUBICIN
     Indication: Richter^s syndrome
     Route: 065
     Dates: start: 20240412, end: 20240412
  34. DOXORUBICIN [Suspect]
     Active Substance: DOXORUBICIN
     Indication: Diffuse large B-cell lymphoma stage III
     Dates: start: 20240412, end: 20240412
  35. DOXORUBICIN [Suspect]
     Active Substance: DOXORUBICIN
     Dates: start: 20240412, end: 20240412
  36. DOXORUBICIN [Suspect]
     Active Substance: DOXORUBICIN
     Route: 065
     Dates: start: 20240412, end: 20240412
  37. DOXORUBICIN [Suspect]
     Active Substance: DOXORUBICIN
     Dosage: 50 MG/SQ.METER, C1D1, AS A PART OF R-CHOP REGIMEN ON 3-WEEK CYCLE (21 DAYS) (DAY 1), ONGOING
     Route: 042
     Dates: start: 20240430
  38. DOXORUBICIN [Suspect]
     Active Substance: DOXORUBICIN
     Dosage: 50 MG/SQ.METER, C1D1, AS A PART OF R-CHOP REGIMEN ON 3-WEEK CYCLE (21 DAYS) (DAY 1), ONGOING
     Dates: start: 20240430
  39. DOXORUBICIN [Suspect]
     Active Substance: DOXORUBICIN
     Dosage: 50 MG/SQ.METER, C1D1, AS A PART OF R-CHOP REGIMEN ON 3-WEEK CYCLE (21 DAYS) (DAY 1), ONGOING
     Dates: start: 20240430
  40. DOXORUBICIN [Suspect]
     Active Substance: DOXORUBICIN
     Dosage: 50 MG/SQ.METER, C1D1, AS A PART OF R-CHOP REGIMEN ON 3-WEEK CYCLE (21 DAYS) (DAY 1), ONGOING
     Route: 042
     Dates: start: 20240430
  41. HYDROCORTISONE [Suspect]
     Active Substance: HYDROCORTISONE
     Indication: Diffuse large B-cell lymphoma stage III
     Dosage: 100 MILLIGRAM, QD (100 MILLIGRAM, SINGLE)
     Dates: start: 20240430, end: 20240430
  42. HYDROCORTISONE [Suspect]
     Active Substance: HYDROCORTISONE
     Dosage: 100 MILLIGRAM, QD (100 MILLIGRAM, SINGLE)
     Route: 042
     Dates: start: 20240430, end: 20240430
  43. HYDROCORTISONE [Suspect]
     Active Substance: HYDROCORTISONE
     Dosage: 100 MILLIGRAM, QD (100 MILLIGRAM, SINGLE)
     Route: 042
     Dates: start: 20240430, end: 20240430
  44. HYDROCORTISONE [Suspect]
     Active Substance: HYDROCORTISONE
     Dosage: 100 MILLIGRAM, QD (100 MILLIGRAM, SINGLE)
     Dates: start: 20240430, end: 20240430
  45. RITUXIMAB [Suspect]
     Active Substance: RITUXIMAB
     Indication: Richter^s syndrome
     Dosage: 375 MG/SQ.METER, C1D1, AS A PART OF R-CHOP REGIMEN ON 3-WEEK CYCLE (21 DAYS) (DAY 1), ONGOING
     Dates: start: 20240430
  46. RITUXIMAB [Suspect]
     Active Substance: RITUXIMAB
     Indication: Diffuse large B-cell lymphoma stage III
     Dosage: 375 MG/SQ.METER, C1D1, AS A PART OF R-CHOP REGIMEN ON 3-WEEK CYCLE (21 DAYS) (DAY 1), ONGOING
     Route: 042
     Dates: start: 20240430
  47. RITUXIMAB [Suspect]
     Active Substance: RITUXIMAB
     Dosage: 375 MG/SQ.METER, C1D1, AS A PART OF R-CHOP REGIMEN ON 3-WEEK CYCLE (21 DAYS) (DAY 1), ONGOING
     Route: 042
     Dates: start: 20240430
  48. RITUXIMAB [Suspect]
     Active Substance: RITUXIMAB
     Dosage: 375 MG/SQ.METER, C1D1, AS A PART OF R-CHOP REGIMEN ON 3-WEEK CYCLE (21 DAYS) (DAY 1), ONGOING
     Dates: start: 20240430
  49. EPCORITAMAB [Suspect]
     Active Substance: EPCORITAMAB
     Indication: Richter^s syndrome
     Route: 058
     Dates: start: 20240502, end: 20240502
  50. EPCORITAMAB [Suspect]
     Active Substance: EPCORITAMAB
     Indication: Diffuse large B-cell lymphoma stage III
     Dates: start: 20240502, end: 20240502
  51. EPCORITAMAB [Suspect]
     Active Substance: EPCORITAMAB
     Dates: start: 20240502, end: 20240502
  52. EPCORITAMAB [Suspect]
     Active Substance: EPCORITAMAB
     Route: 058
     Dates: start: 20240502, end: 20240502
  53. EPCORITAMAB [Suspect]
     Active Substance: EPCORITAMAB
     Dosage: 48 MG, Q3W (0.16 MG PRIMING DOSE ON C1D1, 0.8 MG INTERMEDIATE DOSE ON C1D8, WITH THE FULL)
     Route: 058
     Dates: start: 20240502, end: 20240502
  54. EPCORITAMAB [Suspect]
     Active Substance: EPCORITAMAB
     Dosage: 48 MG, Q3W (0.16 MG PRIMING DOSE ON C1D1, 0.8 MG INTERMEDIATE DOSE ON C1D8, WITH THE FULL)
     Route: 058
     Dates: start: 20240502, end: 20240502
  55. EPCORITAMAB [Suspect]
     Active Substance: EPCORITAMAB
     Dosage: 48 MG, Q3W (0.16 MG PRIMING DOSE ON C1D1, 0.8 MG INTERMEDIATE DOSE ON C1D8, WITH THE FULL)
     Dates: start: 20240502, end: 20240502
  56. EPCORITAMAB [Suspect]
     Active Substance: EPCORITAMAB
     Dosage: 48 MG, Q3W (0.16 MG PRIMING DOSE ON C1D1, 0.8 MG INTERMEDIATE DOSE ON C1D8, WITH THE FULL)
     Dates: start: 20240502, end: 20240502
  57. EPCORITAMAB [Suspect]
     Active Substance: EPCORITAMAB
     Dates: start: 20240502, end: 20240502
  58. EPCORITAMAB [Suspect]
     Active Substance: EPCORITAMAB
     Route: 058
     Dates: start: 20240502, end: 20240502
  59. EPCORITAMAB [Suspect]
     Active Substance: EPCORITAMAB
     Dates: start: 20240502, end: 20240502
  60. EPCORITAMAB [Suspect]
     Active Substance: EPCORITAMAB
     Route: 058
     Dates: start: 20240502, end: 20240502
  61. EPCORITAMAB [Suspect]
     Active Substance: EPCORITAMAB
     Dates: start: 20240510, end: 20240510
  62. EPCORITAMAB [Suspect]
     Active Substance: EPCORITAMAB
     Dates: start: 20240510, end: 20240510
  63. EPCORITAMAB [Suspect]
     Active Substance: EPCORITAMAB
     Route: 058
     Dates: start: 20240510, end: 20240510
  64. EPCORITAMAB [Suspect]
     Active Substance: EPCORITAMAB
     Route: 058
     Dates: start: 20240510, end: 20240510
  65. EPCORITAMAB [Suspect]
     Active Substance: EPCORITAMAB
     Route: 058
     Dates: start: 20240517, end: 20240517
  66. EPCORITAMAB [Suspect]
     Active Substance: EPCORITAMAB
     Route: 058
     Dates: start: 20240517, end: 20240517
  67. EPCORITAMAB [Suspect]
     Active Substance: EPCORITAMAB
     Dates: start: 20240517, end: 20240517
  68. EPCORITAMAB [Suspect]
     Active Substance: EPCORITAMAB
     Dates: start: 20240517, end: 20240517
  69. EPCORITAMAB [Suspect]
     Active Substance: EPCORITAMAB
     Route: 058
  70. EPCORITAMAB [Suspect]
     Active Substance: EPCORITAMAB
  71. EPCORITAMAB [Suspect]
     Active Substance: EPCORITAMAB
  72. EPCORITAMAB [Suspect]
     Active Substance: EPCORITAMAB
     Route: 058
  73. EPCORITAMAB [Suspect]
     Active Substance: EPCORITAMAB
     Route: 058
  74. EPCORITAMAB [Suspect]
     Active Substance: EPCORITAMAB
     Route: 058
  75. EPCORITAMAB [Suspect]
     Active Substance: EPCORITAMAB
  76. EPCORITAMAB [Suspect]
     Active Substance: EPCORITAMAB
  77. EPCORITAMAB [Suspect]
     Active Substance: EPCORITAMAB
     Dates: start: 20240510, end: 20240510
  78. EPCORITAMAB [Suspect]
     Active Substance: EPCORITAMAB
     Dates: start: 20240510, end: 20240510
  79. EPCORITAMAB [Suspect]
     Active Substance: EPCORITAMAB
     Route: 058
     Dates: start: 20240510, end: 20240510
  80. EPCORITAMAB [Suspect]
     Active Substance: EPCORITAMAB
     Route: 058
     Dates: start: 20240510, end: 20240510
  81. EPCORITAMAB [Suspect]
     Active Substance: EPCORITAMAB
     Dates: start: 20240517, end: 20240517
  82. EPCORITAMAB [Suspect]
     Active Substance: EPCORITAMAB
     Dates: start: 20240517, end: 20240517
  83. EPCORITAMAB [Suspect]
     Active Substance: EPCORITAMAB
     Route: 058
     Dates: start: 20240517, end: 20240517
  84. EPCORITAMAB [Suspect]
     Active Substance: EPCORITAMAB
     Route: 058
     Dates: start: 20240517, end: 20240517
  85. VINCRISTINE [Suspect]
     Active Substance: VINCRISTINE
     Indication: Richter^s syndrome
     Dosage: 1.4 MG/SQ.METER (RECOMMENDED CAP OF 2 MG), C1D1, AS PART OF R-CHOP REGIMEN ON 3-WK CYCLE (21 DAYS)
     Dates: start: 20240430
  86. VINCRISTINE [Suspect]
     Active Substance: VINCRISTINE
     Indication: Diffuse large B-cell lymphoma stage III
     Dosage: 1.4 MG/SQ.METER (RECOMMENDED CAP OF 2 MG), C1D1, AS PART OF R-CHOP REGIMEN ON 3-WK CYCLE (21 DAYS)
     Dates: start: 20240430
  87. VINCRISTINE [Suspect]
     Active Substance: VINCRISTINE
     Dosage: 1.4 MG/SQ.METER (RECOMMENDED CAP OF 2 MG), C1D1, AS PART OF R-CHOP REGIMEN ON 3-WK CYCLE (21 DAYS)
     Route: 042
     Dates: start: 20240430
  88. VINCRISTINE [Suspect]
     Active Substance: VINCRISTINE
     Dosage: 1.4 MG/SQ.METER (RECOMMENDED CAP OF 2 MG), C1D1, AS PART OF R-CHOP REGIMEN ON 3-WK CYCLE (21 DAYS)
     Route: 042
     Dates: start: 20240430
  89. VINCRISTINE [Suspect]
     Active Substance: VINCRISTINE
     Dosage: 1.4 MG/M2, (RECOMMENDED CAP OF 2 MG), CYCLE 1 TO CYCLE 6, R-CHOP ON 3 WEEK CYCLE (21 DAYS) (DAY 1)
  90. VINCRISTINE [Suspect]
     Active Substance: VINCRISTINE
     Dosage: 1.4 MG/M2, (RECOMMENDED CAP OF 2 MG), CYCLE 1 TO CYCLE 6, R-CHOP ON 3 WEEK CYCLE (21 DAYS) (DAY 1)
  91. VINCRISTINE [Suspect]
     Active Substance: VINCRISTINE
     Dosage: 1.4 MG/M2, (RECOMMENDED CAP OF 2 MG), CYCLE 1 TO CYCLE 6, R-CHOP ON 3 WEEK CYCLE (21 DAYS) (DAY 1)
     Route: 042
  92. VINCRISTINE [Suspect]
     Active Substance: VINCRISTINE
     Dosage: 1.4 MG/M2, (RECOMMENDED CAP OF 2 MG), CYCLE 1 TO CYCLE 6, R-CHOP ON 3 WEEK CYCLE (21 DAYS) (DAY 1)
     Route: 042
  93. CYCLOPHOSPHAMIDE [Suspect]
     Active Substance: CYCLOPHOSPHAMIDE
     Indication: Richter^s syndrome
     Route: 042
     Dates: start: 20240412, end: 20240412
  94. CYCLOPHOSPHAMIDE [Suspect]
     Active Substance: CYCLOPHOSPHAMIDE
     Indication: Diffuse large B-cell lymphoma stage III
     Dates: start: 20240412, end: 20240412
  95. CYCLOPHOSPHAMIDE [Suspect]
     Active Substance: CYCLOPHOSPHAMIDE
     Dates: start: 20240412, end: 20240412
  96. CYCLOPHOSPHAMIDE [Suspect]
     Active Substance: CYCLOPHOSPHAMIDE
     Route: 042
     Dates: start: 20240412, end: 20240412
  97. CYCLOPHOSPHAMIDE [Suspect]
     Active Substance: CYCLOPHOSPHAMIDE
     Dosage: 750 MG/SQ.METER, C1D1, AS A PART OF R-CHOP REGIMEN ON 3-WEEK CYCLE (21 DAYS) (DAY 1), ONGOING
     Route: 042
     Dates: start: 20240430, end: 20240430
  98. CYCLOPHOSPHAMIDE [Suspect]
     Active Substance: CYCLOPHOSPHAMIDE
     Dosage: 750 MG/SQ.METER, C1D1, AS A PART OF R-CHOP REGIMEN ON 3-WEEK CYCLE (21 DAYS) (DAY 1), ONGOING
     Dates: start: 20240430, end: 20240430
  99. CYCLOPHOSPHAMIDE [Suspect]
     Active Substance: CYCLOPHOSPHAMIDE
     Dosage: 750 MG/SQ.METER, C1D1, AS A PART OF R-CHOP REGIMEN ON 3-WEEK CYCLE (21 DAYS) (DAY 1), ONGOING
     Dates: start: 20240430, end: 20240430
  100. CYCLOPHOSPHAMIDE [Suspect]
     Active Substance: CYCLOPHOSPHAMIDE
     Dosage: 750 MG/SQ.METER, C1D1, AS A PART OF R-CHOP REGIMEN ON 3-WEEK CYCLE (21 DAYS) (DAY 1), ONGOING
     Route: 042
     Dates: start: 20240430, end: 20240430
  101. URSODIOL [Concomitant]
     Active Substance: URSODIOL
     Dates: start: 20240402, end: 20240418
  102. URSODIOL [Concomitant]
     Active Substance: URSODIOL
     Route: 065
     Dates: start: 20240402, end: 20240418
  103. URSODIOL [Concomitant]
     Active Substance: URSODIOL
     Route: 065
     Dates: start: 20240402, end: 20240418
  104. URSODIOL [Concomitant]
     Active Substance: URSODIOL
     Dates: start: 20240402, end: 20240418
  105. FENTANYL [Concomitant]
     Active Substance: FENTANYL
  106. FENTANYL [Concomitant]
     Active Substance: FENTANYL
     Route: 065
  107. FENTANYL [Concomitant]
     Active Substance: FENTANYL
     Route: 065
  108. FENTANYL [Concomitant]
     Active Substance: FENTANYL
  109. NALDEMEDINE TOSYLATE [Concomitant]
     Active Substance: NALDEMEDINE TOSYLATE
  110. NALDEMEDINE TOSYLATE [Concomitant]
     Active Substance: NALDEMEDINE TOSYLATE
     Route: 065
  111. NALDEMEDINE TOSYLATE [Concomitant]
     Active Substance: NALDEMEDINE TOSYLATE
     Route: 065
  112. NALDEMEDINE TOSYLATE [Concomitant]
     Active Substance: NALDEMEDINE TOSYLATE
  113. NALDEMEDINE [Concomitant]
     Active Substance: NALDEMEDINE
     Dates: start: 20240409, end: 20240419
  114. NALDEMEDINE [Concomitant]
     Active Substance: NALDEMEDINE
     Route: 065
     Dates: start: 20240409, end: 20240419
  115. NALDEMEDINE [Concomitant]
     Active Substance: NALDEMEDINE
     Route: 065
     Dates: start: 20240409, end: 20240419
  116. NALDEMEDINE [Concomitant]
     Active Substance: NALDEMEDINE
     Dates: start: 20240409, end: 20240419
  117. HYDROCORTISONE [Concomitant]
     Active Substance: HYDROCORTISONE
     Indication: Diffuse large B-cell lymphoma stage III
     Dates: start: 20240415, end: 20240430
  118. HYDROCORTISONE [Concomitant]
     Active Substance: HYDROCORTISONE
     Route: 042
     Dates: start: 20240415, end: 20240430
  119. HYDROCORTISONE [Concomitant]
     Active Substance: HYDROCORTISONE
     Route: 042
     Dates: start: 20240415, end: 20240430
  120. HYDROCORTISONE [Concomitant]
     Active Substance: HYDROCORTISONE
     Dates: start: 20240415, end: 20240430
  121. KETOROLAC TROMETHAMINE [Concomitant]
     Active Substance: KETOROLAC TROMETHAMINE
     Dates: start: 20240411, end: 20240414
  122. KETOROLAC TROMETHAMINE [Concomitant]
     Active Substance: KETOROLAC TROMETHAMINE
     Route: 065
     Dates: start: 20240411, end: 20240414
  123. KETOROLAC TROMETHAMINE [Concomitant]
     Active Substance: KETOROLAC TROMETHAMINE
     Route: 065
     Dates: start: 20240411, end: 20240414
  124. KETOROLAC TROMETHAMINE [Concomitant]
     Active Substance: KETOROLAC TROMETHAMINE
     Dates: start: 20240411, end: 20240414
  125. PANTOPRAZOLE [Concomitant]
     Active Substance: PANTOPRAZOLE
  126. PANTOPRAZOLE [Concomitant]
     Active Substance: PANTOPRAZOLE
     Route: 065
  127. PANTOPRAZOLE [Concomitant]
     Active Substance: PANTOPRAZOLE
     Route: 065
  128. PANTOPRAZOLE [Concomitant]
     Active Substance: PANTOPRAZOLE
  129. LASIX [Concomitant]
     Active Substance: FUROSEMIDE
     Dates: start: 20240429, end: 20240429
  130. LASIX [Concomitant]
     Active Substance: FUROSEMIDE
     Route: 065
     Dates: start: 20240429, end: 20240429
  131. LASIX [Concomitant]
     Active Substance: FUROSEMIDE
     Route: 065
     Dates: start: 20240429, end: 20240429
  132. LASIX [Concomitant]
     Active Substance: FUROSEMIDE
     Dates: start: 20240429, end: 20240429
  133. RITUXIMAB [Concomitant]
     Active Substance: RITUXIMAB
     Dates: start: 20240415, end: 20240424
  134. RITUXIMAB [Concomitant]
     Active Substance: RITUXIMAB
     Route: 065
     Dates: start: 20240415, end: 20240424
  135. RITUXIMAB [Concomitant]
     Active Substance: RITUXIMAB
     Route: 065
     Dates: start: 20240415, end: 20240424
  136. RITUXIMAB [Concomitant]
     Active Substance: RITUXIMAB
     Dates: start: 20240415, end: 20240424
  137. FOLIC ACID [Concomitant]
     Active Substance: FOLIC ACID
  138. FOLIC ACID [Concomitant]
     Active Substance: FOLIC ACID
     Route: 065
  139. FOLIC ACID [Concomitant]
     Active Substance: FOLIC ACID
     Route: 065
  140. FOLIC ACID [Concomitant]
     Active Substance: FOLIC ACID
  141. PREDNISONE [Concomitant]
     Active Substance: PREDNISONE
     Dosage: 100 MILLIGRAM, QD
     Dates: start: 20240430, end: 20240506
  142. PREDNISONE [Concomitant]
     Active Substance: PREDNISONE
     Dosage: 100 MILLIGRAM, QD
     Route: 048
     Dates: start: 20240430, end: 20240506
  143. PREDNISONE [Concomitant]
     Active Substance: PREDNISONE
     Dosage: 100 MILLIGRAM, QD
     Route: 048
     Dates: start: 20240430, end: 20240506
  144. PREDNISONE [Concomitant]
     Active Substance: PREDNISONE
     Dosage: 100 MILLIGRAM, QD
     Dates: start: 20240430, end: 20240506
  145. MORPHINE HYDROCHLORIDE [Concomitant]
     Active Substance: MORPHINE HYDROCHLORIDE
     Dates: start: 20240408, end: 20240411
  146. MORPHINE HYDROCHLORIDE [Concomitant]
     Active Substance: MORPHINE HYDROCHLORIDE
     Route: 065
     Dates: start: 20240408, end: 20240411
  147. MORPHINE HYDROCHLORIDE [Concomitant]
     Active Substance: MORPHINE HYDROCHLORIDE
     Route: 065
     Dates: start: 20240408, end: 20240411
  148. MORPHINE HYDROCHLORIDE [Concomitant]
     Active Substance: MORPHINE HYDROCHLORIDE
     Dates: start: 20240408, end: 20240411
  149. RASBURICASE [Concomitant]
     Active Substance: RASBURICASE
     Dates: start: 20240412, end: 20240412
  150. RASBURICASE [Concomitant]
     Active Substance: RASBURICASE
     Route: 065
     Dates: start: 20240412, end: 20240412
  151. RASBURICASE [Concomitant]
     Active Substance: RASBURICASE
     Route: 065
     Dates: start: 20240412, end: 20240412
  152. RASBURICASE [Concomitant]
     Active Substance: RASBURICASE
     Dates: start: 20240412, end: 20240412
  153. DEXAMETHASONE [Concomitant]
     Active Substance: DEXAMETHASONE
     Indication: Prophylaxis
     Route: 065
     Dates: start: 20240409, end: 20240430
  154. DEXAMETHASONE [Concomitant]
     Active Substance: DEXAMETHASONE
     Dates: start: 20240409, end: 20240430
  155. DEXAMETHASONE [Concomitant]
     Active Substance: DEXAMETHASONE
     Dates: start: 20240409, end: 20240430
  156. DEXAMETHASONE [Concomitant]
     Active Substance: DEXAMETHASONE
     Route: 065
     Dates: start: 20240409, end: 20240430
  157. DEXAMETHASONE [Concomitant]
     Active Substance: DEXAMETHASONE
     Route: 065
     Dates: start: 20240426, end: 20240519
  158. DEXAMETHASONE [Concomitant]
     Active Substance: DEXAMETHASONE
     Dates: start: 20240426, end: 20240519
  159. DEXAMETHASONE [Concomitant]
     Active Substance: DEXAMETHASONE
     Dates: start: 20240426, end: 20240519
  160. DEXAMETHASONE [Concomitant]
     Active Substance: DEXAMETHASONE
     Route: 065
     Dates: start: 20240426, end: 20240519
  161. DEXAMETHASONE [Concomitant]
     Active Substance: DEXAMETHASONE
     Dates: start: 20240502, end: 20240502
  162. DEXAMETHASONE [Concomitant]
     Active Substance: DEXAMETHASONE
     Dates: start: 20240502, end: 20240502
  163. DEXAMETHASONE [Concomitant]
     Active Substance: DEXAMETHASONE
     Route: 042
     Dates: start: 20240502, end: 20240502
  164. DEXAMETHASONE [Concomitant]
     Active Substance: DEXAMETHASONE
     Route: 042
     Dates: start: 20240502, end: 20240502
  165. DEXAMETHASONE [Concomitant]
     Active Substance: DEXAMETHASONE
     Dosage: 8 MILLIGRAM, BID
     Dates: start: 20240509, end: 20240519
  166. DEXAMETHASONE [Concomitant]
     Active Substance: DEXAMETHASONE
     Dosage: 8 MILLIGRAM, BID
     Dates: start: 20240509, end: 20240519
  167. DEXAMETHASONE [Concomitant]
     Active Substance: DEXAMETHASONE
     Dosage: 8 MILLIGRAM, BID
     Route: 042
     Dates: start: 20240509, end: 20240519
  168. DEXAMETHASONE [Concomitant]
     Active Substance: DEXAMETHASONE
     Dosage: 8 MILLIGRAM, BID
     Route: 042
     Dates: start: 20240509, end: 20240519
  169. FILGRASTIM [Concomitant]
     Active Substance: FILGRASTIM
     Dates: start: 20240424, end: 20240426
  170. FILGRASTIM [Concomitant]
     Active Substance: FILGRASTIM
     Route: 065
     Dates: start: 20240424, end: 20240426
  171. FILGRASTIM [Concomitant]
     Active Substance: FILGRASTIM
     Route: 065
     Dates: start: 20240424, end: 20240426
  172. FILGRASTIM [Concomitant]
     Active Substance: FILGRASTIM
     Dates: start: 20240424, end: 20240426
  173. ALLOPURINOL [Concomitant]
     Active Substance: ALLOPURINOL
     Dates: start: 20240402, end: 20240515
  174. ALLOPURINOL [Concomitant]
     Active Substance: ALLOPURINOL
     Route: 065
     Dates: start: 20240402, end: 20240515
  175. ALLOPURINOL [Concomitant]
     Active Substance: ALLOPURINOL
     Route: 065
     Dates: start: 20240402, end: 20240515
  176. ALLOPURINOL [Concomitant]
     Active Substance: ALLOPURINOL
     Dates: start: 20240402, end: 20240515
  177. BACTRIM [Concomitant]
     Active Substance: SULFAMETHOXAZOLE\TRIMETHOPRIM
  178. BACTRIM [Concomitant]
     Active Substance: SULFAMETHOXAZOLE\TRIMETHOPRIM
     Route: 065
  179. BACTRIM [Concomitant]
     Active Substance: SULFAMETHOXAZOLE\TRIMETHOPRIM
     Route: 065
  180. BACTRIM [Concomitant]
     Active Substance: SULFAMETHOXAZOLE\TRIMETHOPRIM
  181. NALOXONE HYDROCHLORIDE\OXYCODONE HYDROCHLORIDE [Concomitant]
     Active Substance: NALOXONE HYDROCHLORIDE\OXYCODONE HYDROCHLORIDE
  182. NALOXONE HYDROCHLORIDE\OXYCODONE HYDROCHLORIDE [Concomitant]
     Active Substance: NALOXONE HYDROCHLORIDE\OXYCODONE HYDROCHLORIDE
     Route: 065
  183. NALOXONE HYDROCHLORIDE\OXYCODONE HYDROCHLORIDE [Concomitant]
     Active Substance: NALOXONE HYDROCHLORIDE\OXYCODONE HYDROCHLORIDE
     Route: 065
  184. NALOXONE HYDROCHLORIDE\OXYCODONE HYDROCHLORIDE [Concomitant]
     Active Substance: NALOXONE HYDROCHLORIDE\OXYCODONE HYDROCHLORIDE
  185. LYRICA [Concomitant]
     Active Substance: PREGABALIN
  186. LYRICA [Concomitant]
     Active Substance: PREGABALIN
     Route: 065
  187. LYRICA [Concomitant]
     Active Substance: PREGABALIN
     Route: 065
  188. LYRICA [Concomitant]
     Active Substance: PREGABALIN
  189. ZANUBRUTINIB [Concomitant]
     Active Substance: ZANUBRUTINIB
     Route: 065
  190. ZANUBRUTINIB [Concomitant]
     Active Substance: ZANUBRUTINIB
  191. ZANUBRUTINIB [Concomitant]
     Active Substance: ZANUBRUTINIB
  192. ZANUBRUTINIB [Concomitant]
     Active Substance: ZANUBRUTINIB
     Route: 065
  193. ZANUBRUTINIB [Concomitant]
     Active Substance: ZANUBRUTINIB
     Route: 065
     Dates: start: 20240408, end: 20240516
  194. ZANUBRUTINIB [Concomitant]
     Active Substance: ZANUBRUTINIB
     Dates: start: 20240408, end: 20240516
  195. ZANUBRUTINIB [Concomitant]
     Active Substance: ZANUBRUTINIB
     Dates: start: 20240408, end: 20240516
  196. ZANUBRUTINIB [Concomitant]
     Active Substance: ZANUBRUTINIB
     Route: 065
     Dates: start: 20240408, end: 20240516
  197. FLUCONAZOLE [Concomitant]
     Active Substance: FLUCONAZOLE
     Dates: start: 20240415, end: 20240415
  198. FLUCONAZOLE [Concomitant]
     Active Substance: FLUCONAZOLE
     Route: 065
     Dates: start: 20240415, end: 20240415
  199. FLUCONAZOLE [Concomitant]
     Active Substance: FLUCONAZOLE
     Route: 065
     Dates: start: 20240415, end: 20240415
  200. FLUCONAZOLE [Concomitant]
     Active Substance: FLUCONAZOLE
     Dates: start: 20240415, end: 20240415
  201. MOVICOL [Concomitant]
     Active Substance: POLYETHYLENE GLYCOL 3350\POTASSIUM CHLORIDE\SODIUM BICARBONATE\SODIUM CHLORIDE
     Dates: start: 20240402, end: 20240419
  202. MOVICOL [Concomitant]
     Active Substance: POLYETHYLENE GLYCOL 3350\POTASSIUM CHLORIDE\SODIUM BICARBONATE\SODIUM CHLORIDE
     Route: 065
     Dates: start: 20240402, end: 20240419
  203. MOVICOL [Concomitant]
     Active Substance: POLYETHYLENE GLYCOL 3350\POTASSIUM CHLORIDE\SODIUM BICARBONATE\SODIUM CHLORIDE
     Route: 065
     Dates: start: 20240402, end: 20240419
  204. MOVICOL [Concomitant]
     Active Substance: POLYETHYLENE GLYCOL 3350\POTASSIUM CHLORIDE\SODIUM BICARBONATE\SODIUM CHLORIDE
     Dates: start: 20240402, end: 20240419
  205. SENNOSIDES [Concomitant]
     Active Substance: SENNOSIDES
     Dates: start: 20240409, end: 20240418
  206. SENNOSIDES [Concomitant]
     Active Substance: SENNOSIDES
     Route: 065
     Dates: start: 20240409, end: 20240418
  207. SENNOSIDES [Concomitant]
     Active Substance: SENNOSIDES
     Route: 065
     Dates: start: 20240409, end: 20240418
  208. SENNOSIDES [Concomitant]
     Active Substance: SENNOSIDES
     Dates: start: 20240409, end: 20240418
  209. ACYCLOVIR [Concomitant]
     Active Substance: ACYCLOVIR
  210. ACYCLOVIR [Concomitant]
     Active Substance: ACYCLOVIR
     Route: 065
  211. ACYCLOVIR [Concomitant]
     Active Substance: ACYCLOVIR
     Route: 065
  212. ACYCLOVIR [Concomitant]
     Active Substance: ACYCLOVIR
  213. PALONOSETRON [Concomitant]
     Active Substance: PALONOSETRON
     Dates: start: 20240412, end: 20240412
  214. PALONOSETRON [Concomitant]
     Active Substance: PALONOSETRON
     Route: 065
     Dates: start: 20240412, end: 20240412
  215. PALONOSETRON [Concomitant]
     Active Substance: PALONOSETRON
     Route: 065
     Dates: start: 20240412, end: 20240412
  216. PALONOSETRON [Concomitant]
     Active Substance: PALONOSETRON
     Dates: start: 20240412, end: 20240412
  217. NALOXONE HYDROCHLORIDE\OXYCODONE HYDROCHLORIDE [Concomitant]
     Active Substance: NALOXONE HYDROCHLORIDE\OXYCODONE HYDROCHLORIDE
     Dates: start: 20240402, end: 20240419
  218. NALOXONE HYDROCHLORIDE\OXYCODONE HYDROCHLORIDE [Concomitant]
     Active Substance: NALOXONE HYDROCHLORIDE\OXYCODONE HYDROCHLORIDE
     Route: 065
     Dates: start: 20240402, end: 20240419
  219. NALOXONE HYDROCHLORIDE\OXYCODONE HYDROCHLORIDE [Concomitant]
     Active Substance: NALOXONE HYDROCHLORIDE\OXYCODONE HYDROCHLORIDE
     Route: 065
     Dates: start: 20240402, end: 20240419
  220. NALOXONE HYDROCHLORIDE\OXYCODONE HYDROCHLORIDE [Concomitant]
     Active Substance: NALOXONE HYDROCHLORIDE\OXYCODONE HYDROCHLORIDE
     Dates: start: 20240402, end: 20240419
  221. LEVOFLOXACIN [Concomitant]
     Active Substance: LEVOFLOXACIN
     Dates: start: 20240506, end: 20240513
  222. LEVOFLOXACIN [Concomitant]
     Active Substance: LEVOFLOXACIN
     Route: 065
     Dates: start: 20240506, end: 20240513
  223. LEVOFLOXACIN [Concomitant]
     Active Substance: LEVOFLOXACIN
     Route: 065
     Dates: start: 20240506, end: 20240513
  224. LEVOFLOXACIN [Concomitant]
     Active Substance: LEVOFLOXACIN
     Dates: start: 20240506, end: 20240513
  225. ERYTHROPOIETIN [Concomitant]
     Active Substance: ERYTHROPOIETIN
  226. ERYTHROPOIETIN [Concomitant]
     Active Substance: ERYTHROPOIETIN
     Route: 065
  227. ERYTHROPOIETIN [Concomitant]
     Active Substance: ERYTHROPOIETIN
     Route: 065
  228. ERYTHROPOIETIN [Concomitant]
     Active Substance: ERYTHROPOIETIN
  229. CHLORPHENIRAMINE MALEATE [Concomitant]
     Active Substance: CHLORPHENIRAMINE MALEATE
     Indication: Premedication
     Dates: start: 20240415, end: 20240415
  230. CHLORPHENIRAMINE MALEATE [Concomitant]
     Active Substance: CHLORPHENIRAMINE MALEATE
     Dates: start: 20240415, end: 20240415
  231. CHLORPHENIRAMINE MALEATE [Concomitant]
     Active Substance: CHLORPHENIRAMINE MALEATE
     Route: 065
     Dates: start: 20240415, end: 20240415
  232. CHLORPHENIRAMINE MALEATE [Concomitant]
     Active Substance: CHLORPHENIRAMINE MALEATE
     Route: 065
     Dates: start: 20240415, end: 20240415
  233. CHLORPHENIRAMINE MALEATE [Concomitant]
     Active Substance: CHLORPHENIRAMINE MALEATE
     Dates: start: 20240430, end: 20240517
  234. CHLORPHENIRAMINE MALEATE [Concomitant]
     Active Substance: CHLORPHENIRAMINE MALEATE
     Dates: start: 20240430, end: 20240517
  235. CHLORPHENIRAMINE MALEATE [Concomitant]
     Active Substance: CHLORPHENIRAMINE MALEATE
     Route: 042
     Dates: start: 20240430, end: 20240517
  236. CHLORPHENIRAMINE MALEATE [Concomitant]
     Active Substance: CHLORPHENIRAMINE MALEATE
     Route: 042
     Dates: start: 20240430, end: 20240517
  237. CHLORPHENIRAMINE MALEATE [Concomitant]
     Active Substance: CHLORPHENIRAMINE MALEATE
     Route: 042
     Dates: start: 20240502, end: 20240517
  238. CHLORPHENIRAMINE MALEATE [Concomitant]
     Active Substance: CHLORPHENIRAMINE MALEATE
     Route: 042
     Dates: start: 20240502, end: 20240517
  239. CHLORPHENIRAMINE MALEATE [Concomitant]
     Active Substance: CHLORPHENIRAMINE MALEATE
     Dates: start: 20240502, end: 20240517
  240. CHLORPHENIRAMINE MALEATE [Concomitant]
     Active Substance: CHLORPHENIRAMINE MALEATE
     Dates: start: 20240502, end: 20240517
  241. CHLORPHENIRAMINE MALEATE [Concomitant]
     Active Substance: CHLORPHENIRAMINE MALEATE
     Route: 042
     Dates: start: 20240510, end: 20240510
  242. CHLORPHENIRAMINE MALEATE [Concomitant]
     Active Substance: CHLORPHENIRAMINE MALEATE
     Route: 042
     Dates: start: 20240510, end: 20240510
  243. CHLORPHENIRAMINE MALEATE [Concomitant]
     Active Substance: CHLORPHENIRAMINE MALEATE
     Dates: start: 20240510, end: 20240510
  244. CHLORPHENIRAMINE MALEATE [Concomitant]
     Active Substance: CHLORPHENIRAMINE MALEATE
     Dates: start: 20240510, end: 20240510
  245. CHLORPHENIRAMINE MALEATE [Concomitant]
     Active Substance: CHLORPHENIRAMINE MALEATE
     Dates: start: 20240517, end: 20240517
  246. CHLORPHENIRAMINE MALEATE [Concomitant]
     Active Substance: CHLORPHENIRAMINE MALEATE
     Dates: start: 20240517, end: 20240517
  247. CHLORPHENIRAMINE MALEATE [Concomitant]
     Active Substance: CHLORPHENIRAMINE MALEATE
     Route: 042
     Dates: start: 20240517, end: 20240517
  248. CHLORPHENIRAMINE MALEATE [Concomitant]
     Active Substance: CHLORPHENIRAMINE MALEATE
     Route: 042
     Dates: start: 20240517, end: 20240517
  249. ENOXAPARIN [Concomitant]
     Active Substance: ENOXAPARIN
  250. ENOXAPARIN [Concomitant]
     Active Substance: ENOXAPARIN
     Route: 065
  251. ENOXAPARIN [Concomitant]
     Active Substance: ENOXAPARIN
     Route: 065
  252. ENOXAPARIN [Concomitant]
     Active Substance: ENOXAPARIN
  253. LEVOSULPIRIDE [Concomitant]
     Active Substance: LEVOSULPIRIDE
     Dates: start: 20240514, end: 20240519
  254. LEVOSULPIRIDE [Concomitant]
     Active Substance: LEVOSULPIRIDE
     Route: 065
     Dates: start: 20240514, end: 20240519
  255. LEVOSULPIRIDE [Concomitant]
     Active Substance: LEVOSULPIRIDE
     Route: 065
     Dates: start: 20240514, end: 20240519
  256. LEVOSULPIRIDE [Concomitant]
     Active Substance: LEVOSULPIRIDE
     Dates: start: 20240514, end: 20240519
  257. TRAMADOL [Concomitant]
     Active Substance: TRAMADOL
     Dates: start: 20240519, end: 20240519
  258. TRAMADOL [Concomitant]
     Active Substance: TRAMADOL
     Route: 065
     Dates: start: 20240519, end: 20240519
  259. TRAMADOL [Concomitant]
     Active Substance: TRAMADOL
     Route: 065
     Dates: start: 20240519, end: 20240519
  260. TRAMADOL [Concomitant]
     Active Substance: TRAMADOL
     Dates: start: 20240519, end: 20240519
  261. TALOFEN [Concomitant]
     Active Substance: PROMAZINE HYDROCHLORIDE
     Dates: start: 20240520, end: 20240520
  262. TALOFEN [Concomitant]
     Active Substance: PROMAZINE HYDROCHLORIDE
     Route: 065
     Dates: start: 20240520, end: 20240520
  263. TALOFEN [Concomitant]
     Active Substance: PROMAZINE HYDROCHLORIDE
     Route: 065
     Dates: start: 20240520, end: 20240520
  264. TALOFEN [Concomitant]
     Active Substance: PROMAZINE HYDROCHLORIDE
     Dates: start: 20240520, end: 20240520
  265. AMINO ACIDS\DEXTROSE\ELECTROLYTES NOS\SOYBEAN OIL [Concomitant]
     Active Substance: AMINO ACIDS\DEXTROSE\ELECTROLYTES NOS\SOYBEAN OIL
     Dates: start: 20240513, end: 20240518
  266. AMINO ACIDS\DEXTROSE\ELECTROLYTES NOS\SOYBEAN OIL [Concomitant]
     Active Substance: AMINO ACIDS\DEXTROSE\ELECTROLYTES NOS\SOYBEAN OIL
     Route: 065
     Dates: start: 20240513, end: 20240518
  267. AMINO ACIDS\DEXTROSE\ELECTROLYTES NOS\SOYBEAN OIL [Concomitant]
     Active Substance: AMINO ACIDS\DEXTROSE\ELECTROLYTES NOS\SOYBEAN OIL
     Route: 065
     Dates: start: 20240513, end: 20240518
  268. AMINO ACIDS\DEXTROSE\ELECTROLYTES NOS\SOYBEAN OIL [Concomitant]
     Active Substance: AMINO ACIDS\DEXTROSE\ELECTROLYTES NOS\SOYBEAN OIL
     Dates: start: 20240513, end: 20240518
  269. TAMSULOSIN HYDROCHLORIDE [Concomitant]
     Active Substance: TAMSULOSIN HYDROCHLORIDE
  270. TAMSULOSIN HYDROCHLORIDE [Concomitant]
     Active Substance: TAMSULOSIN HYDROCHLORIDE
     Route: 065
  271. TAMSULOSIN HYDROCHLORIDE [Concomitant]
     Active Substance: TAMSULOSIN HYDROCHLORIDE
     Route: 065
  272. TAMSULOSIN HYDROCHLORIDE [Concomitant]
     Active Substance: TAMSULOSIN HYDROCHLORIDE
  273. NEOSTIGMINE METHYLSULFATE [Concomitant]
     Active Substance: NEOSTIGMINE METHYLSULFATE
     Dates: start: 20240519, end: 20240519
  274. NEOSTIGMINE METHYLSULFATE [Concomitant]
     Active Substance: NEOSTIGMINE METHYLSULFATE
     Route: 065
     Dates: start: 20240519, end: 20240519
  275. NEOSTIGMINE METHYLSULFATE [Concomitant]
     Active Substance: NEOSTIGMINE METHYLSULFATE
     Route: 065
     Dates: start: 20240519, end: 20240519
  276. NEOSTIGMINE METHYLSULFATE [Concomitant]
     Active Substance: NEOSTIGMINE METHYLSULFATE
     Dates: start: 20240519, end: 20240519
  277. DEXAMETHASONE PHOSPHATE [Concomitant]
     Active Substance: DEXAMETHASONE PHOSPHATE
     Indication: Prophylaxis
     Route: 042
     Dates: start: 20240502, end: 20240502
  278. DEXAMETHASONE PHOSPHATE [Concomitant]
     Active Substance: DEXAMETHASONE PHOSPHATE
     Dates: start: 20240502, end: 20240502
  279. DEXAMETHASONE PHOSPHATE [Concomitant]
     Active Substance: DEXAMETHASONE PHOSPHATE
     Dates: start: 20240502, end: 20240502
  280. DEXAMETHASONE PHOSPHATE [Concomitant]
     Active Substance: DEXAMETHASONE PHOSPHATE
     Route: 042
     Dates: start: 20240502, end: 20240502
  281. DEXAMETHASONE PHOSPHATE [Concomitant]
     Active Substance: DEXAMETHASONE PHOSPHATE
     Route: 065
     Dates: start: 20240517, end: 20240519
  282. DEXAMETHASONE PHOSPHATE [Concomitant]
     Active Substance: DEXAMETHASONE PHOSPHATE
     Dates: start: 20240517, end: 20240519
  283. DEXAMETHASONE PHOSPHATE [Concomitant]
     Active Substance: DEXAMETHASONE PHOSPHATE
     Dates: start: 20240517, end: 20240519
  284. DEXAMETHASONE PHOSPHATE [Concomitant]
     Active Substance: DEXAMETHASONE PHOSPHATE
     Route: 065
     Dates: start: 20240517, end: 20240519
  285. CANRENOATE POTASSIUM [Concomitant]
     Active Substance: CANRENOATE POTASSIUM
     Dates: start: 20240510, end: 20240511
  286. CANRENOATE POTASSIUM [Concomitant]
     Active Substance: CANRENOATE POTASSIUM
     Route: 065
     Dates: start: 20240510, end: 20240511
  287. CANRENOATE POTASSIUM [Concomitant]
     Active Substance: CANRENOATE POTASSIUM
     Route: 065
     Dates: start: 20240510, end: 20240511
  288. CANRENOATE POTASSIUM [Concomitant]
     Active Substance: CANRENOATE POTASSIUM
     Dates: start: 20240510, end: 20240511
  289. DEXMEDETOMIDINE HYDROCHLORIDE [Concomitant]
     Active Substance: DEXMEDETOMIDINE HYDROCHLORIDE
     Dates: start: 20240520, end: 20240520
  290. DEXMEDETOMIDINE HYDROCHLORIDE [Concomitant]
     Active Substance: DEXMEDETOMIDINE HYDROCHLORIDE
     Route: 065
     Dates: start: 20240520, end: 20240520
  291. DEXMEDETOMIDINE HYDROCHLORIDE [Concomitant]
     Active Substance: DEXMEDETOMIDINE HYDROCHLORIDE
     Route: 065
     Dates: start: 20240520, end: 20240520
  292. DEXMEDETOMIDINE HYDROCHLORIDE [Concomitant]
     Active Substance: DEXMEDETOMIDINE HYDROCHLORIDE
     Dates: start: 20240520, end: 20240520
  293. Glucose;Potassium chloride [Concomitant]
     Dates: start: 20240514, end: 20240518
  294. Glucose;Potassium chloride [Concomitant]
     Route: 065
     Dates: start: 20240514, end: 20240518
  295. Glucose;Potassium chloride [Concomitant]
     Route: 065
     Dates: start: 20240514, end: 20240518
  296. Glucose;Potassium chloride [Concomitant]
     Dates: start: 20240514, end: 20240518
  297. DELORAZEPAM [Concomitant]
     Active Substance: DELORAZEPAM
     Dates: start: 20240519, end: 20240519
  298. DELORAZEPAM [Concomitant]
     Active Substance: DELORAZEPAM
     Route: 065
     Dates: start: 20240519, end: 20240519
  299. DELORAZEPAM [Concomitant]
     Active Substance: DELORAZEPAM
     Route: 065
     Dates: start: 20240519, end: 20240519
  300. DELORAZEPAM [Concomitant]
     Active Substance: DELORAZEPAM
     Dates: start: 20240519, end: 20240519
  301. VINCRISTINE [Concomitant]
     Active Substance: VINCRISTINE
     Dates: start: 20240409, end: 20240409
  302. VINCRISTINE [Concomitant]
     Active Substance: VINCRISTINE
     Route: 065
     Dates: start: 20240409, end: 20240409
  303. VINCRISTINE [Concomitant]
     Active Substance: VINCRISTINE
     Route: 065
     Dates: start: 20240409, end: 20240409
  304. VINCRISTINE [Concomitant]
     Active Substance: VINCRISTINE
     Dates: start: 20240409, end: 20240409
  305. INSULIN NOS [Concomitant]
     Active Substance: INSULIN NOS
     Dates: start: 20240518, end: 20240520
  306. INSULIN NOS [Concomitant]
     Active Substance: INSULIN NOS
     Route: 065
     Dates: start: 20240518, end: 20240520
  307. INSULIN NOS [Concomitant]
     Active Substance: INSULIN NOS
     Route: 065
     Dates: start: 20240518, end: 20240520
  308. INSULIN NOS [Concomitant]
     Active Substance: INSULIN NOS
     Dates: start: 20240518, end: 20240520
  309. RABEPRAZOLE [Concomitant]
     Active Substance: RABEPRAZOLE
     Dates: start: 20240510, end: 20240519
  310. RABEPRAZOLE [Concomitant]
     Active Substance: RABEPRAZOLE
     Route: 065
     Dates: start: 20240510, end: 20240519
  311. RABEPRAZOLE [Concomitant]
     Active Substance: RABEPRAZOLE
     Route: 065
     Dates: start: 20240510, end: 20240519
  312. RABEPRAZOLE [Concomitant]
     Active Substance: RABEPRAZOLE
     Dates: start: 20240510, end: 20240519
  313. FUROSEMIDE [Concomitant]
     Active Substance: FUROSEMIDE
     Dates: start: 20240510, end: 20240511
  314. FUROSEMIDE [Concomitant]
     Active Substance: FUROSEMIDE
     Dates: start: 20240510, end: 20240511
  315. FUROSEMIDE [Concomitant]
     Active Substance: FUROSEMIDE
     Route: 065
     Dates: start: 20240510, end: 20240511
  316. FUROSEMIDE [Concomitant]
     Active Substance: FUROSEMIDE
     Route: 065
     Dates: start: 20240510, end: 20240511
  317. FUROSEMIDE [Concomitant]
     Active Substance: FUROSEMIDE
     Dates: start: 20240429, end: 20240429
  318. FUROSEMIDE [Concomitant]
     Active Substance: FUROSEMIDE
     Dates: start: 20240429, end: 20240429
  319. FUROSEMIDE [Concomitant]
     Active Substance: FUROSEMIDE
     Route: 065
     Dates: start: 20240429, end: 20240429
  320. FUROSEMIDE [Concomitant]
     Active Substance: FUROSEMIDE
     Route: 065
     Dates: start: 20240429, end: 20240429
  321. VITAMINS [Concomitant]
     Active Substance: VITAMINS
  322. VITAMINS [Concomitant]
     Active Substance: VITAMINS
     Route: 065
  323. VITAMINS [Concomitant]
     Active Substance: VITAMINS
     Route: 065
  324. VITAMINS [Concomitant]
     Active Substance: VITAMINS
  325. FENTANYL CITRATE [Concomitant]
     Active Substance: FENTANYL CITRATE
     Dates: start: 20240516, end: 20240516
  326. FENTANYL CITRATE [Concomitant]
     Active Substance: FENTANYL CITRATE
     Route: 065
     Dates: start: 20240516, end: 20240516
  327. FENTANYL CITRATE [Concomitant]
     Active Substance: FENTANYL CITRATE
     Route: 065
     Dates: start: 20240516, end: 20240516
  328. FENTANYL CITRATE [Concomitant]
     Active Substance: FENTANYL CITRATE
     Dates: start: 20240516, end: 20240516
  329. Flavoxate;Propyphenazone [Concomitant]
  330. Flavoxate;Propyphenazone [Concomitant]
     Route: 065
  331. Flavoxate;Propyphenazone [Concomitant]
     Route: 065
  332. Flavoxate;Propyphenazone [Concomitant]
  333. CYTARABINE [Concomitant]
     Active Substance: CYTARABINE
     Dates: start: 20240519, end: 20240519
  334. CYTARABINE [Concomitant]
     Active Substance: CYTARABINE
     Route: 065
     Dates: start: 20240519, end: 20240519
  335. CYTARABINE [Concomitant]
     Active Substance: CYTARABINE
     Route: 065
     Dates: start: 20240519, end: 20240519
  336. CYTARABINE [Concomitant]
     Active Substance: CYTARABINE
     Dates: start: 20240519, end: 20240519

REACTIONS (8)
  - Condition aggravated [Fatal]
  - Disease progression [Fatal]
  - Renal ischaemia [Not Recovered/Not Resolved]
  - Neutropenia [Not Recovered/Not Resolved]
  - Febrile neutropenia [Recovered/Resolved]
  - Sinus tachycardia [Unknown]
  - Abdominal mass [Unknown]
  - Anaemia [Unknown]

NARRATIVE: CASE EVENT DATE: 20240509
